FAERS Safety Report 25169696 (Version 2)
Quarter: 2025Q2

REPORT INFORMATION
  Report Type: Spontaneous
  Country: US (occurrence: US)
  Receive Date: 20250407
  Receipt Date: 20250417
  Transmission Date: 20250717
  Serious: Yes (Death, Hospitalization)
  Sender: TEVA
  Company Number: US-TEVA-VS-3317133

PATIENT
  Age: 27 Year
  Sex: Male

DRUGS (2)
  1. METHOTREXATE [Suspect]
     Active Substance: METHOTREXATE
     Indication: Crohn^s disease
     Route: 048
  2. INFLIXIMAB [Suspect]
     Active Substance: INFLIXIMAB
     Indication: Crohn^s disease
     Route: 042

REACTIONS (10)
  - Disseminated varicella zoster virus infection [Fatal]
  - Encephalitis [Fatal]
  - Shock [Fatal]
  - Hepatic failure [Fatal]
  - Tachyarrhythmia [Fatal]
  - Renal failure [Fatal]
  - Pneumonia viral [Fatal]
  - Actinomyces bacteraemia [Fatal]
  - Staphylococcal bacteraemia [Fatal]
  - Disseminated intravascular coagulation [Fatal]
